FAERS Safety Report 24263793 (Version 1)
Quarter: 2024Q3

REPORT INFORMATION
  Report Type: Report from Study
  Country: GB (occurrence: GB)
  Receive Date: 20240829
  Receipt Date: 20240829
  Transmission Date: 20241016
  Serious: Yes (Other)
  Sender: AMGEN
  Company Number: GB-AMGEN-GBRSL2024171547

PATIENT
  Age: 59 Year
  Sex: Male

DRUGS (1)
  1. ADALIMUMAB [Suspect]
     Active Substance: ADALIMUMAB
     Indication: Axial spondyloarthritis
     Dosage: 40 MILLIGRAM, Q2WK
     Route: 058
     Dates: start: 20240814

REACTIONS (9)
  - Muscle rigidity [Unknown]
  - Chest discomfort [Unknown]
  - Cyanosis [Unknown]
  - Cold sweat [Unknown]
  - Vision blurred [Unknown]
  - Muscular weakness [Unknown]
  - Hyperhidrosis [Unknown]
  - Dyspnoea [Recovering/Resolving]
  - Localised oedema [Unknown]

NARRATIVE: CASE EVENT DATE: 20240801
